FAERS Safety Report 16461940 (Version 1)
Quarter: 2019Q2

REPORT INFORMATION
  Report Type: Report from Study
  Country: IT (occurrence: IT)
  Receive Date: 20190621
  Receipt Date: 20190621
  Transmission Date: 20190711
  Serious: Yes (Other)
  Sender: FDA-Public Use
  Company Number: IT-TEVA-2019-IT-1066585

PATIENT
  Age: 26 Year
  Sex: Male

DRUGS (2)
  1. VIVIN C (ASCORBIC ACID\ASPIRIN) [Suspect]
     Active Substance: ASCORBIC ACID\ASPIRIN
     Indication: INFLUENZA
     Route: 048
     Dates: start: 20190128, end: 20190130
  2. AMOXICILLINA/ACIDO CLAVULANICO [Suspect]
     Active Substance: AMOXICILLIN\CLAVULANIC ACID
     Indication: BACTERIAL INFECTION
     Dosage: 2 GRAM DAILY;
     Route: 048
     Dates: start: 20190128, end: 20190130

REACTIONS (5)
  - Dysphagia [Recovering/Resolving]
  - Conjunctival hyperaemia [Recovering/Resolving]
  - Dyspnoea [Recovering/Resolving]
  - Lacrimation increased [Recovering/Resolving]
  - Lip oedema [Recovering/Resolving]

NARRATIVE: CASE EVENT DATE: 20190128
